FAERS Safety Report 16264280 (Version 1)
Quarter: 2019Q2

REPORT INFORMATION
  Report Type: Spontaneous
  Country: GR (occurrence: GR)
  Receive Date: 20190502
  Receipt Date: 20190502
  Transmission Date: 20190711
  Serious: Yes (Death, Hospitalization)
  Sender: FDA-Public Use
  Company Number: GR-ELI_LILLY_AND_COMPANY-GR201904015425

PATIENT
  Age: 56 Year
  Sex: Male
  Weight: 62 kg

DRUGS (5)
  1. CARBOPLATIN. [Suspect]
     Active Substance: CARBOPLATIN
     Indication: NON-SMALL CELL LUNG CANCER
     Dosage: UNK UNK, UNKNOWN
     Route: 042
     Dates: start: 20181018, end: 20181018
  2. AVELUMAB [Suspect]
     Active Substance: AVELUMAB
     Dosage: 571 MG, WEEKLY (1/W)
     Route: 042
     Dates: end: 20180924
  3. AVELUMAB [Suspect]
     Active Substance: AVELUMAB
     Indication: NON-SMALL CELL LUNG CANCER
     Dosage: 571 MG, ONCE WEEKLY
     Route: 042
     Dates: start: 20180821
  4. PEMETREXED. [Suspect]
     Active Substance: PEMETREXED
     Indication: NON-SMALL CELL LUNG CANCER
     Dosage: UNK UNK, UNKNOWN
     Route: 042
     Dates: start: 20181018, end: 20181018
  5. AVELUMAB [Suspect]
     Active Substance: AVELUMAB
     Dosage: 571 MG, WEEKLY (1/W)
     Route: 042

REACTIONS (3)
  - General physical health deterioration [Fatal]
  - Respiratory tract infection [Fatal]
  - Malignant neoplasm progression [Fatal]

NARRATIVE: CASE EVENT DATE: 20181020
